FAERS Safety Report 9885348 (Version 2)
Quarter: 2014Q1

REPORT INFORMATION
  Report Type: Spontaneous
  Country: US (occurrence: US)
  Receive Date: 20140210
  Receipt Date: 20140227
  Transmission Date: 20141002
  Serious: No
  Sender: FDA-Public Use
  Company Number: US-PFIZER INC-2014037420

PATIENT
  Age: 50 Year
  Sex: Female
  Weight: 99.8 kg

DRUGS (2)
  1. NEURONTIN [Suspect]
     Indication: PERIPHERAL NERVE INJURY
     Dosage: 400 MG, 4X/DAY
  2. NEURONTIN [Suspect]
     Indication: NEURALGIA

REACTIONS (1)
  - Drug ineffective [Unknown]
